FAERS Safety Report 8838157 (Version 1)
Quarter: 2012Q4

REPORT INFORMATION
  Report Type: 
  Country: US (occurrence: US)
  Receive Date: 20121012
  Receipt Date: 20121012
  Transmission Date: 20130627
  Serious: Yes (Hospitalization, Other)
  Sender: FDA-Public Use
  Company Number: US-ROCHE-1128975

PATIENT
  Age: 64 Year
  Sex: Male

DRUGS (1)
  1. NUTROPIN [Suspect]
     Indication: DWARFISM
     Dosage: .11 ml
     Route: 058

REACTIONS (3)
  - Cerebrovascular accident [Unknown]
  - Carotid artery occlusion [Unknown]
  - Hemiparesis [Unknown]
